FAERS Safety Report 18980041 (Version 1)
Quarter: 2021Q1

REPORT INFORMATION
  Report Type: Report from Study
  Country: DE (occurrence: DE)
  Receive Date: 20210308
  Receipt Date: 20210308
  Transmission Date: 20210420
  Serious: Yes (Hospitalization)
  Sender: FDA-Public Use
  Company Number: DE-UCBSA-2021009944

PATIENT
  Age: 4 Year
  Sex: Male

DRUGS (3)
  1. LEVETIRACETAM. [Suspect]
     Active Substance: LEVETIRACETAM
     Dosage: 2.5 MILLILITER
  2. LEVETIRACETAM. [Suspect]
     Active Substance: LEVETIRACETAM
     Indication: EPILEPSY
     Dosage: 4 MILLILITER, 2X/DAY (BID)
  3. PETNIDAN [Concomitant]
     Active Substance: ETHOSUXIMIDE
     Indication: PRODUCT USED FOR UNKNOWN INDICATION
     Dosage: 6 MILLILITER, 2X/DAY (BID)

REACTIONS (4)
  - Seizure [Unknown]
  - Hallucination [Unknown]
  - Anxiety [Unknown]
  - Infection [Unknown]
